FAERS Safety Report 15158257 (Version 1)
Quarter: 2018Q3

REPORT INFORMATION
  Report Type: Spontaneous
  Country: US (occurrence: US)
  Receive Date: 20180620
  Receipt Date: 20180620
  Transmission Date: 20181010
  Serious: No
  Sender: FDA-Public Use
  Company Number: None

PATIENT
  Age: 29 Year
  Sex: Female
  Weight: 88.9 kg

DRUGS (4)
  1. ARMOUR THYROID [Concomitant]
     Active Substance: THYROID, PORCINE
  2. SPIRONOLACTONE. [Concomitant]
     Active Substance: SPIRONOLACTONE
  3. LEVOTHYROXINE. [Concomitant]
     Active Substance: LEVOTHYROXINE
  4. MIRENA [Suspect]
     Active Substance: LEVONORGESTREL
     Dates: start: 20140617

REACTIONS (3)
  - Complication of device removal [None]
  - Embedded device [None]
  - Pain [None]

NARRATIVE: CASE EVENT DATE: 20180620
